FAERS Safety Report 4349637-9 (Version None)
Quarter: 2004Q2

REPORT INFORMATION
  Report Type: 
  Country: None (occurrence: None)
  Receive Date: 20040427
  Receipt Date: 20031110
  Transmission Date: 20050107
  Serious: No
  Sender: FDA-Public Use
  Company Number: 000693

PATIENT
  Sex: Female

DRUGS (4)
  1. ZEVALIN [Suspect]
     Indication: NON-HODGKIN'S LYMPHOMA
     Dosage: SINGLE,RITUXAN DOSE 1, INTRAVENOUS; SINGLE,IN-[111] ZEVALIN, INTRAVENOUS
     Route: 042
  2. ZEVALIN [Suspect]
     Indication: NON-HODGKIN'S LYMPHOMA
     Dosage: SINGLE,RITUXAN DOSE 1, INTRAVENOUS; SINGLE,IN-[111] ZEVALIN, INTRAVENOUS
     Route: 042
  3. ZEVALIN [Suspect]
     Indication: NON-HODGKIN'S LYMPHOMA
     Dosage: SINGLE, RITUXAN DOSE 2, INTRAVENOUS; SINGLE, Y-[90] ZEVALIN, INTRAVENOUS
     Route: 042
  4. ZEVALIN [Suspect]
     Indication: NON-HODGKIN'S LYMPHOMA
     Dosage: SINGLE, RITUXAN DOSE 2, INTRAVENOUS; SINGLE, Y-[90] ZEVALIN, INTRAVENOUS
     Route: 042

REACTIONS (1)
  - DISEASE PROGRESSION [None]
